FAERS Safety Report 18918942 (Version 2)
Quarter: 2021Q2

REPORT INFORMATION
  Report Type: Report from Study
  Country: US (occurrence: US)
  Receive Date: 20210220
  Receipt Date: 20210618
  Transmission Date: 20210717
  Serious: Yes (Hospitalization, Other)
  Sender: FDA-Public Use
  Company Number: NVSC2021US033005

PATIENT
  Sex: Male

DRUGS (1)
  1. ARZERRA [Suspect]
     Active Substance: OFATUMUMAB
     Indication: PRODUCT USED FOR UNKNOWN INDICATION
     Dosage: UNK
     Route: 065

REACTIONS (8)
  - Unevaluable event [Unknown]
  - Malaise [Unknown]
  - Oedema [Unknown]
  - Renal failure [Unknown]
  - General physical health deterioration [Unknown]
  - Respiratory failure [Unknown]
  - Capillary disorder [Unknown]
  - Ascites [Unknown]
